FAERS Safety Report 6288315-6 (Version None)
Quarter: 2009Q3

REPORT INFORMATION
  Report Type: 
  Country: None (occurrence: None)
  Receive Date: 20090729
  Receipt Date: 20090724
  Transmission Date: 20100115
  Serious: Yes (Other)
  Sender: FDA-Public Use
  Company Number: US-PFIZER INC-2009246192

PATIENT
  Sex: Female
  Weight: 68 kg

DRUGS (8)
  1. PROVERA [Suspect]
     Indication: HORMONE REPLACEMENT THERAPY
     Dosage: UNK
     Route: 048
     Dates: start: 19910101, end: 19960101
  2. PREMARIN [Suspect]
     Indication: HORMONE REPLACEMENT THERAPY
     Dosage: 0.625 MG, UNK
     Dates: start: 19910101, end: 19960101
  3. VENTOLIN [Concomitant]
     Indication: ASTHMA
     Dosage: UNK
     Dates: start: 19910101
  4. SEREVENT [Concomitant]
     Indication: ASTHMA
     Dosage: UNK
     Dates: start: 19940101, end: 19990101
  5. AZMACORT [Concomitant]
     Indication: ASTHMA
     Dosage: UNK
     Dates: start: 19910101, end: 19990101
  6. SULFAMETHOXAZOLE [Concomitant]
     Indication: BRONCHITIS
     Dosage: UNK
     Dates: start: 19910101, end: 20030101
  7. ESTRACE [Concomitant]
     Indication: VULVOVAGINAL DRYNESS
     Dosage: UNK
     Dates: start: 19990101, end: 20040101
  8. DOXEPIN [Concomitant]
     Indication: FIBROMYALGIA
     Dosage: UNK
     Dates: start: 19940101, end: 20000101

REACTIONS (1)
  - CEREBROVASCULAR ACCIDENT [None]
